FAERS Safety Report 20182811 (Version 1)
Quarter: 2021Q4

REPORT INFORMATION
  Report Type: Spontaneous
  Country: FR (occurrence: FR)
  Receive Date: 20211214
  Receipt Date: 20211214
  Transmission Date: 20220303
  Serious: Yes (Other)
  Sender: FDA-Public Use
  Company Number: FR-MYLANLABS-2021M1091874

PATIENT
  Sex: Female

DRUGS (1)
  1. NOREPINEPHRINE\NOREPINEPHRINE BITARTRATE [Suspect]
     Active Substance: NOREPINEPHRINE\NOREPINEPHRINE BITARTRATE
     Indication: Product used for unknown indication
     Dosage: UNK
     Route: 042
     Dates: start: 20211002

REACTIONS (3)
  - Hypertension [Recovered/Resolved]
  - Wrong product administered [Recovered/Resolved]
  - Product appearance confusion [Recovered/Resolved]

NARRATIVE: CASE EVENT DATE: 20211002
